FAERS Safety Report 20034792 (Version 2)
Quarter: 2022Q1

REPORT INFORMATION
  Report Type: Spontaneous
  Country: CO (occurrence: CO)
  Receive Date: 20211104
  Receipt Date: 20220315
  Transmission Date: 20220424
  Serious: Yes (Death)
  Sender: FDA-Public Use
  Company Number: CO-PFIZER INC-202101458148

PATIENT
  Age: 86 Year
  Sex: Male

DRUGS (1)
  1. LYRICA [Suspect]
     Active Substance: PREGABALIN
     Indication: Anxiety disorder
     Dosage: UNK
     Route: 048
     Dates: start: 20210708

REACTIONS (2)
  - Pneumonia [Fatal]
  - Dementia Alzheimer^s type [Fatal]
